FAERS Safety Report 9181530 (Version 1)
Quarter: 2013Q1

REPORT INFORMATION
  Report Type: Report from Study
  Country: US (occurrence: US)
  Receive Date: 20130322
  Receipt Date: 20130322
  Transmission Date: 20140127
  Serious: Yes (Other)
  Sender: FDA-Public Use
  Company Number: US-JNJFOC-20130309627

PATIENT
  Sex: Male
  Weight: 64.1 kg

DRUGS (6)
  1. REMICADE [Suspect]
     Indication: PSORIATIC ARTHROPATHY
     Route: 042
     Dates: start: 20130312
  2. REMICADE [Suspect]
     Indication: PSORIATIC ARTHROPATHY
     Dosage: 400 MG IN 0.9% SODIUM CHLORIDE  250 ML INFUSION
     Route: 042
     Dates: start: 20130306, end: 20130307
  3. ALLEGRA [Concomitant]
     Route: 048
     Dates: start: 20130306, end: 20130307
  4. SODIUM CHLORIDE [Concomitant]
     Route: 042
     Dates: start: 20130306, end: 20130307
  5. TYLENOL [Concomitant]
     Dosage: ONCE
     Route: 048
     Dates: start: 20130306, end: 20130307
  6. BENADRYL [Concomitant]
     Route: 042
     Dates: start: 20130306, end: 20130307

REACTIONS (1)
  - Mass [Unknown]
